FAERS Safety Report 17013682 (Version 1)
Quarter: 2019Q4

REPORT INFORMATION
  Report Type: Report from Study
  Country: None (occurrence: US)
  Receive Date: 20191110
  Receipt Date: 20191110
  Transmission Date: 20200122
  Serious: Yes (Other)
  Sender: FDA-Public Use
  Company Number: US-ABBVIE-19K-163-2992217-00

PATIENT
  Sex: Male

DRUGS (1)
  1. HUMIRA [Suspect]
     Active Substance: ADALIMUMAB
     Indication: CROHN^S DISEASE
     Route: 058

REACTIONS (5)
  - Post procedural complication [Unknown]
  - Dialysis [Unknown]
  - Blood potassium increased [Recovered/Resolved]
  - Blood phosphorus increased [Recovered/Resolved]
  - Diarrhoea [Recovered/Resolved]
